FAERS Safety Report 8797705 (Version 7)
Quarter: 2013Q2

REPORT INFORMATION
  Report Type: Report from Study
  Country: US (occurrence: US)
  Receive Date: 20120920
  Receipt Date: 20130508
  Transmission Date: 20140414
  Serious: Yes (Other)
  Sender: FDA-Public Use
  Company Number: PHEH2012US018250

PATIENT
  Age: 64 Year
  Sex: Female
  Weight: 75.28 kg

DRUGS (14)
  1. GILENYA [Suspect]
     Indication: MULTIPLE SCLEROSIS
     Dosage: 0.5 MG, QD
     Route: 048
     Dates: start: 20110705
  2. ATACAND [Concomitant]
     Dosage: 16 MG, UNK
     Route: 048
  3. BACLOFEN [Concomitant]
     Dosage: 1 G, 2 TABLETS  QHS
     Route: 048
     Dates: start: 20120720
  4. CONCERTA [Concomitant]
     Dosage: 54 MG, QD
     Route: 048
  5. LIDODERM [Concomitant]
     Dosage: APPLY 1 PATCH FOR 12 HOURS AND REMOVE FOR 12 HOURS.
     Route: 061
  6. NALTREXONE [Concomitant]
     Dosage: 4.5 MG, QD
     Dates: start: 20111222
  7. NIACIN [Concomitant]
     Dosage: 500 MG, UNK
     Route: 048
  8. VITAMIN D3 [Concomitant]
     Dosage: 2000 IU, UNK
     Route: 048
  9. SYNTHROID [Concomitant]
     Dosage: 1 DF, QD
     Route: 048
  10. LEXAPRO [Concomitant]
     Dosage: 20 MG, QD IN THE MORNING
     Route: 048
  11. ATIVAN [Concomitant]
     Dosage: 3 DF, PRN
     Route: 048
  12. AMBIEN [Concomitant]
     Dosage: 1 DF, PRN IN THE EVENING.
     Route: 048
     Dates: start: 20120910
  13. CEPHALEXIN [Concomitant]
     Indication: URINARY TRACT INFECTION
     Dosage: 500 MG, PRN TID FOR 5 DAYS
     Route: 048
  14. ALBUTEROL [Concomitant]
     Dosage: 0.63 MG/ 3 ML, Q4H WHEN REQUIRED
     Dates: start: 20120801

REACTIONS (5)
  - Syncope [Recovering/Resolving]
  - Dizziness [Recovering/Resolving]
  - Cystitis [Recovering/Resolving]
  - Progressive multiple sclerosis [Not Recovered/Not Resolved]
  - Drug ineffective [Not Recovered/Not Resolved]
